FAERS Safety Report 11585203 (Version 1)
Quarter: 2015Q4

REPORT INFORMATION
  Report Type: Spontaneous
  Country: US (occurrence: US)
  Receive Date: 20151001
  Receipt Date: 20151001
  Transmission Date: 20160304
  Serious: No
  Sender: FDA-Public Use
  Company Number: PHHY2014US174459

PATIENT
  Age: 15 Year
  Sex: Male

DRUGS (2)
  1. CAMBIA [Suspect]
     Active Substance: DICLOFENAC POTASSIUM
     Indication: HEADACHE
     Dosage: 50 MG, QD
     Route: 048
     Dates: start: 2014
  2. CAMBIA [Suspect]
     Active Substance: DICLOFENAC POTASSIUM
     Indication: OFF LABEL USE
     Dosage: 50 MG, QD
     Route: 048
     Dates: start: 201508

REACTIONS (2)
  - Abdominal discomfort [Unknown]
  - Drug administered to patient of inappropriate age [Not Recovered/Not Resolved]

NARRATIVE: CASE EVENT DATE: 2014
